FAERS Safety Report 15437413 (Version 1)
Quarter: 2018Q3

REPORT INFORMATION
  Report Type: Spontaneous
  Country: US (occurrence: US)
  Receive Date: 20180927
  Receipt Date: 20180927
  Transmission Date: 20181010
  Serious: No
  Sender: FDA-Public Use
  Company Number: US-AMGEN-USASP2018120300

PATIENT
  Sex: Male

DRUGS (3)
  1. XGEVA [Suspect]
     Active Substance: DENOSUMAB
     Indication: PRODUCT USED FOR UNKNOWN INDICATION
     Dosage: UNK
     Route: 065
     Dates: start: 20180820
  2. ELIQUIS [Concomitant]
     Active Substance: APIXABAN
     Dosage: UNK
     Dates: end: 20180827
  3. IMMUNOGLOBULIN [Concomitant]
     Dosage: UNK UNK, Q3WK
     Route: 042

REACTIONS (9)
  - Papule [Unknown]
  - Hyperhidrosis [Unknown]
  - Rash [Unknown]
  - Pain [Not Recovered/Not Resolved]
  - Contusion [Unknown]
  - Paranasal sinus hypersecretion [Unknown]
  - Hot flush [Not Recovered/Not Resolved]
  - Haemoptysis [Unknown]
  - Musculoskeletal pain [Not Recovered/Not Resolved]

NARRATIVE: CASE EVENT DATE: 201808
